FAERS Safety Report 19854174 (Version 1)
Quarter: 2021Q3

REPORT INFORMATION
  Report Type: Spontaneous
  Country: US (occurrence: US)
  Receive Date: 20210920
  Receipt Date: 20210920
  Transmission Date: 20211014
  Serious: No
  Sender: FDA-Public Use
  Company Number: US-BAUSCH-BL-2021-029833

PATIENT
  Sex: Female

DRUGS (3)
  1. TEARS [Concomitant]
     Active Substance: LANOLIN\PARAFFIN
     Indication: PRODUCT USED FOR UNKNOWN INDICATION
     Dosage: AS NEEDED
     Route: 047
  2. LUMIFY [Suspect]
     Active Substance: BRIMONIDINE TARTRATE
     Indication: OCULAR HYPERAEMIA
     Dosage: USED IT ABOUT 3 TO 4 TIMES, STOPPED 6 MONTHS AGO
     Route: 047
     Dates: end: 2021
  3. LUMIFY [Suspect]
     Active Substance: BRIMONIDINE TARTRATE
     Indication: EYE IRRITATION

REACTIONS (2)
  - Therapy cessation [Unknown]
  - Drug ineffective [Unknown]

NARRATIVE: CASE EVENT DATE: 2021
